FAERS Safety Report 19577053 (Version 1)
Quarter: 2021Q3

REPORT INFORMATION
  Report Type: Spontaneous
  Country: US (occurrence: US)
  Receive Date: 20210719
  Receipt Date: 20210719
  Transmission Date: 20211014
  Serious: No
  Sender: FDA-Public Use
  Company Number: US-BAYER-2021-175418

PATIENT
  Age: 77 Year
  Sex: Female

DRUGS (3)
  1. ANTI GAS FORMULA [Concomitant]
  2. ALEVE PM [Suspect]
     Active Substance: DIPHENHYDRAMINE HYDROCHLORIDE\NAPROXEN SODIUM
     Dosage: 1 DF
     Route: 048
     Dates: start: 20210706, end: 20210706
  3. VITAMINS NOS [Concomitant]
     Active Substance: VITAMINS
     Dosage: UNK

REACTIONS (4)
  - Feeling abnormal [Recovered/Resolved]
  - Throat irritation [Recovered/Resolved]
  - Incorrect dose administered [None]
  - Confusional state [Recovered/Resolved]

NARRATIVE: CASE EVENT DATE: 20210706
